FAERS Safety Report 5169074-7 (Version None)
Quarter: 2006Q4

REPORT INFORMATION
  Report Type: 
  Country: None (occurrence: None)
  Receive Date: 20061211
  Receipt Date: 20061201
  Transmission Date: 20070319
  Serious: Yes (Hospitalization)
  Sender: FDA-Public Use
  Company Number: US-JNJFOC-20061201181

PATIENT
  Sex: Male
  Weight: 104.33 kg

DRUGS (9)
  1. INFLIXIMAB [Suspect]
     Indication: RHEUMATOID ARTHRITIS
     Route: 042
  2. METHOTREXATE [Concomitant]
  3. AVANDIA [Concomitant]
  4. METFORMIN [Concomitant]
  5. UNIRETIC [Concomitant]
  6. FOLIC ACID [Concomitant]
  7. VYTORIN [Concomitant]
  8. ASPIRIN [Concomitant]
  9. I-CAPS [Concomitant]

REACTIONS (2)
  - PNEUMONIA [None]
  - RESPIRATORY FAILURE [None]
